FAERS Safety Report 9665643 (Version 1)
Quarter: 2013Q4

REPORT INFORMATION
  Report Type: Spontaneous
  Country: US (occurrence: None)
  Receive Date: 20131031
  Receipt Date: 20131031
  Transmission Date: 20140711
  Serious: Yes (Hospitalization)
  Sender: FDA-Public Use
  Company Number: None

PATIENT
  Age: 74 Year
  Sex: Male
  Weight: 63.2 kg

DRUGS (2)
  1. METHIMAZOLE [Suspect]
     Indication: HYPERTHYROIDISM
     Route: 048
     Dates: start: 20130809, end: 20130910
  2. METHIMAZOLE [Suspect]
     Indication: URINARY TRACT INFECTION
     Route: 048
     Dates: start: 20130809, end: 20130910

REACTIONS (2)
  - Neutropenia [None]
  - Leukopenia [None]
